FAERS Safety Report 11869856 (Version 1)
Quarter: 2015Q4

REPORT INFORMATION
  Report Type: Spontaneous
  Country: US (occurrence: US)
  Receive Date: 20151228
  Receipt Date: 20151228
  Transmission Date: 20160305
  Serious: Yes (Other)
  Sender: FDA-Public Use
  Company Number: US-CIPLA LTD.-2015US09650

PATIENT

DRUGS (5)
  1. RISPERIDONE. [Suspect]
     Active Substance: RISPERIDONE
     Indication: SCHIZOPHRENIA
     Dosage: 12 MG, QD
     Route: 064
  2. RISPERIDONE. [Suspect]
     Active Substance: RISPERIDONE
     Dosage: 10 MG, QD
     Route: 064
  3. RISPERIDONE. [Suspect]
     Active Substance: RISPERIDONE
     Dosage: 8 MG, QD
     Route: 064
  4. IMIPRAMINE [Suspect]
     Active Substance: IMIPRAMINE
     Dosage: 80 MG, QD
     Route: 064
  5. CLONAZEPAM. [Suspect]
     Active Substance: CLONAZEPAM
     Dosage: 1 MG, UNK
     Route: 064

REACTIONS (4)
  - Somnolence [Recovered/Resolved]
  - Feeling jittery [Recovered/Resolved]
  - Poor sucking reflex [Unknown]
  - Foetal exposure during pregnancy [Unknown]
